FAERS Safety Report 5246184-7 (Version None)
Quarter: 2007Q1

REPORT INFORMATION
  Report Type: 
  Country: None (occurrence: None)
  Receive Date: 20070220
  Receipt Date: 20070207
  Transmission Date: 20070707
  Serious: Yes (Hospitalization, Other)
  Sender: FDA-Public Use
  Company Number: 2007-00306

PATIENT
  Age: 63 Year
  Sex: Female
  Weight: 49 kg

DRUGS (3)
  1. VELCADE [Suspect]
     Indication: MULTIPLE MYELOMA
     Dosage: 1.50 MG, UNK; INTRAVENOUS
     Route: 042
     Dates: start: 20070206, end: 20070206
  2. EPREX [Concomitant]
  3. BONDRONAT (BANDRONIC ACID) [Concomitant]

REACTIONS (6)
  - BONE PAIN [None]
  - HEADACHE [None]
  - HYPERHIDROSIS [None]
  - NASAL CONGESTION [None]
  - PYREXIA [None]
  - TACHYCARDIA [None]
